FAERS Safety Report 23882306 (Version 2)
Quarter: 2024Q2

REPORT INFORMATION
  Report Type: Spontaneous
  Country: US (occurrence: US)
  Receive Date: 20240522
  Receipt Date: 20240529
  Transmission Date: 20240716
  Serious: Yes (Life-Threatening, Hospitalization, Other)
  Sender: FDA-Public Use
  Company Number: None

PATIENT

DRUGS (1)
  1. IBUPROFEN [Suspect]
     Active Substance: IBUPROFEN
     Indication: Product used for unknown indication
     Dosage: 80 GRAM (}1000MG/KG )
     Route: 048

REACTIONS (9)
  - Shock [Recovered/Resolved]
  - Oxygen consumption decreased [Recovered/Resolved]
  - Metabolic acidosis [Recovered/Resolved]
  - Hypotension [Unknown]
  - Mental status changes [Recovered/Resolved]
  - Vasoplegia syndrome [Not Recovered/Not Resolved]
  - Depressed level of consciousness [Recovered/Resolved]
  - Circulatory collapse [Recovered/Resolved]
  - Intentional overdose [Recovered/Resolved]
